FAERS Safety Report 4342032-8 (Version None)
Quarter: 2004Q2

REPORT INFORMATION
  Report Type: 
  Country: None (occurrence: None)
  Receive Date: 20040415
  Receipt Date: 20040405
  Transmission Date: 20050107
  Serious: Yes (Hospitalization)
  Sender: FDA-Public Use
  Company Number: US-JNJFOC-20040400920

PATIENT
  Age: 48 Year
  Sex: Female

DRUGS (13)
  1. INFLIXIMAB (INFLIXIMAB, RECOMBINANT) LYOPHILIZED POWDER [Suspect]
     Indication: RHEUMATOID ARTHRITIS
     Dosage: INTRAVENOUS
     Route: 042
     Dates: start: 20010405
  2. METHOTREXATE [Concomitant]
  3. PREDNISONE [Concomitant]
  4. CARDIZEM [Concomitant]
  5. PERCOCET [Concomitant]
  6. PREMARIN [Concomitant]
  7. PHENERGAN (PROMETAZINE HYDROCHLORIDE) [Concomitant]
  8. EFFEXOR [Concomitant]
  9. KINERET [Concomitant]
  10. ARAVA [Concomitant]
  11. WELLBUTRIN [Concomitant]
  12. TRAZADONE (TRAZADONE) [Concomitant]
  13. FOLIC ACID [Concomitant]

REACTIONS (1)
  - GASTROOESOPHAGEAL REFLUX DISEASE [None]
